FAERS Safety Report 16967951 (Version 1)
Quarter: 2019Q4

REPORT INFORMATION
  Report Type: Report from Study
  Country: US (occurrence: US)
  Receive Date: 20191028
  Receipt Date: 20191028
  Transmission Date: 20200122
  Serious: Yes (Death)
  Sender: FDA-Public Use
  Company Number: US-ELI_LILLY_AND_COMPANY-US201910012860

PATIENT

DRUGS (3)
  1. CISPLATIN. [Concomitant]
     Active Substance: CISPLATIN
     Indication: PLEURAL MESOTHELIOMA MALIGNANT
     Dosage: 75 MG/M2, CYCLICAL
     Route: 042
  2. CEDIRANIB. [Concomitant]
     Active Substance: CEDIRANIB
     Indication: PLEURAL MESOTHELIOMA MALIGNANT
     Dosage: UNK, CYCLICAL
     Route: 065
  3. PEMETREXED. [Suspect]
     Active Substance: PEMETREXED
     Indication: PLEURAL MESOTHELIOMA MALIGNANT
     Dosage: UNK, CYCLICAL
     Route: 042

REACTIONS (1)
  - Respiratory failure [Fatal]
